FAERS Safety Report 6744712-3 (Version None)
Quarter: 2010Q2

REPORT INFORMATION
  Report Type: 
  Country: None (occurrence: None)
  Receive Date: 20100526
  Receipt Date: 20100526
  Transmission Date: 20101027
  Serious: Yes (Disabling)
  Sender: FDA-Public Use
  Company Number: None

PATIENT
  Age: 48 Year
  Sex: Female
  Weight: 113.3993 kg

DRUGS (1)
  1. LATISSE [Suspect]
     Indication: GROWTH OF EYELASHES
     Dosage: ONCE EACH EVENING
     Dates: start: 20100501, end: 20100516

REACTIONS (5)
  - DEPRESSION [None]
  - EYE IRRITATION [None]
  - HEADACHE [None]
  - PAIN [None]
  - PERIORBITAL HAEMATOMA [None]
